FAERS Safety Report 20669682 (Version 1)
Quarter: 2022Q2

REPORT INFORMATION
  Report Type: Spontaneous
  Country: US (occurrence: US)
  Receive Date: 20220404
  Receipt Date: 20220404
  Transmission Date: 20220720
  Serious: Yes (Death, Other)
  Sender: FDA-Public Use
  Company Number: US-SA-SAC20220401001148

PATIENT
  Age: 80 Year
  Sex: Female

DRUGS (1)
  1. ZANTAC [Suspect]
     Active Substance: RANITIDINE HYDROCHLORIDE
     Indication: Dyspepsia
     Dosage: 150 MG, QD
     Route: 065
     Dates: start: 200001, end: 202001

REACTIONS (4)
  - Renal cancer stage IV [Fatal]
  - Hepatic cancer stage IV [Fatal]
  - Lung carcinoma cell type unspecified stage IV [Fatal]
  - Ovarian cancer stage IV [Fatal]

NARRATIVE: CASE EVENT DATE: 20201223
